FAERS Safety Report 25013847 (Version 1)
Quarter: 2025Q1

REPORT INFORMATION
  Report Type: Report from Study
  Country: US (occurrence: US)
  Receive Date: 20250226
  Receipt Date: 20250226
  Transmission Date: 20250409
  Serious: Yes (Other)
  Sender: UCB
  Company Number: US-UCBSA-2025009501

PATIENT
  Age: 76 Year
  Sex: Male

DRUGS (1)
  1. BRIVARACETAM [Suspect]
     Active Substance: BRIVARACETAM
     Indication: Vascular dementia
     Dosage: 100 MILLIGRAM, ONCE DAILY (QD)
     Dates: start: 202411

REACTIONS (4)
  - Dementia [Unknown]
  - Therapy interrupted [Unknown]
  - Product availability issue [Unknown]
  - Product use in unapproved indication [Unknown]

NARRATIVE: CASE EVENT DATE: 20250201
